FAERS Safety Report 22089957 (Version 1)
Quarter: 2023Q1

REPORT INFORMATION
  Report Type: Spontaneous
  Country: UA (occurrence: UA)
  Receive Date: 20230313
  Receipt Date: 20230313
  Transmission Date: 20230417
  Serious: Yes (Other)
  Sender: FDA-Public Use
  Company Number: UA-SERVIER-S23000973

PATIENT
  Age: 67 Year
  Sex: Female

DRUGS (9)
  1. ONIVYDE [Suspect]
     Active Substance: IRINOTECAN HYDROCHLORIDE
     Indication: Pancreatic carcinoma
     Dosage: CYCLE 1, 25% REDUCTION OF DOSE
     Route: 042
     Dates: start: 202211
  2. ONIVYDE [Suspect]
     Active Substance: IRINOTECAN HYDROCHLORIDE
     Dosage: CYCLE 2, FULL DOSE
     Route: 042
  3. ONIVYDE [Suspect]
     Active Substance: IRINOTECAN HYDROCHLORIDE
     Dosage: CYCLE 3, FULL DOSE
     Route: 042
     Dates: start: 202212
  4. FLUOROURACIL [Concomitant]
     Active Substance: FLUOROURACIL
     Dosage: CYCLE 1, 25% REDUCTION OF DOSE
     Route: 042
     Dates: start: 202211
  5. FLUOROURACIL [Concomitant]
     Active Substance: FLUOROURACIL
     Dosage: CYCLE 2, FULL DOSE
     Route: 042
  6. FLUOROURACIL [Concomitant]
     Active Substance: FLUOROURACIL
     Dosage: CYCLE 3, FULL DOSE
     Route: 042
     Dates: start: 202212
  7. LEUCOVORIN [Concomitant]
     Active Substance: LEUCOVORIN
     Dosage: CYCLE 1, 25% REDUCTION OF DOSE
     Route: 042
     Dates: start: 202211
  8. LEUCOVORIN [Concomitant]
     Active Substance: LEUCOVORIN
     Dosage: CYCLE 2, FULL DOSE
     Route: 042
  9. LEUCOVORIN [Concomitant]
     Active Substance: LEUCOVORIN
     Dosage: CYCLE 3, FULL DOSE
     Route: 042
     Dates: start: 202212

REACTIONS (2)
  - Thrombosis [Recovered/Resolved]
  - Diarrhoea [Recovered/Resolved]

NARRATIVE: CASE EVENT DATE: 20221201
